FAERS Safety Report 14676263 (Version 1)
Quarter: 2018Q1

REPORT INFORMATION
  Report Type: Spontaneous
  Country: FR (occurrence: FR)
  Receive Date: 20180323
  Receipt Date: 20180323
  Transmission Date: 20180509
  Serious: Yes (Hospitalization)
  Sender: FDA-Public Use
  Company Number: FR-TEVA-2018-FR-870262

PATIENT
  Age: 33 Year
  Sex: Female

DRUGS (3)
  1. DONORMYL 15 MG, COMPRIM? PELLICUL? S?CABLE [Suspect]
     Active Substance: DOXYLAMINE SUCCINATE
     Route: 048
  2. CHLORHYDRATE DE TRAMADOL [Suspect]
     Active Substance: TRAMADOL HYDROCHLORIDE
     Route: 048
  3. XANAX [Suspect]
     Active Substance: ALPRAZOLAM
     Route: 048

REACTIONS (3)
  - Drug dependence [Not Recovered/Not Resolved]
  - Anxiety [Recovered/Resolved]
  - Intentional overdose [Unknown]
